FAERS Safety Report 24402528 (Version 1)
Quarter: 2024Q4

REPORT INFORMATION
  Report Type: Spontaneous
  Country: US (occurrence: US)
  Receive Date: 20241007
  Receipt Date: 20241007
  Transmission Date: 20250115
  Serious: Yes (Hospitalization, Other)
  Sender: SPECGX
  Company Number: US-SPECGX-T202401975

PATIENT
  Age: 50 Year
  Sex: Female

DRUGS (2)
  1. OXYCODONE [Suspect]
     Active Substance: OXYCODONE
     Indication: Analgesic therapy
     Dosage: 5 MILLIGRAM, PRN (EVERY 6 HOURS)
     Route: 065
  2. HYDROMORPHONE [Suspect]
     Active Substance: HYDROMORPHONE
     Indication: Analgesic therapy
     Dosage: 4 MILLIGRAM, PRN (EVERY 2 HOURS)
     Route: 065

REACTIONS (9)
  - Empyema [Unknown]
  - Pneumothorax [Unknown]
  - Pleural effusion [Unknown]
  - Atelectasis [Unknown]
  - Staphylococcal infection [Unknown]
  - Aspiration [Unknown]
  - Dyspnoea [Unknown]
  - Chest tube insertion [Unknown]
  - Thoracic operation [Unknown]
